FAERS Safety Report 4309609-7 (Version None)
Quarter: 2004Q1

REPORT INFORMATION
  Report Type: 
  Country: None (occurrence: None)
  Receive Date: 20040301
  Receipt Date: 20040226
  Transmission Date: 20041129
  Serious: Yes (Hospitalization, Other)
  Sender: FDA-Public Use
  Company Number: 01/07050-USE

PATIENT
  Age: 54 Year
  Sex: Female
  Weight: 56 kg

DRUGS (4)
  1. BETASERON [Suspect]
     Indication: MULTIPLE SCLEROSIS
     Dosage: 8 MIU QOD, SUBCUTANEOUS
     Route: 058
     Dates: start: 19960111
  2. BACLOFEN [Concomitant]
  3. PROZAC [Concomitant]
  4. TRAZODONE HCL [Concomitant]

REACTIONS (5)
  - BREAST CANCER FEMALE [None]
  - CONTUSION [None]
  - DEPRESSION [None]
  - HYPOTENSION [None]
  - PYREXIA [None]
